FAERS Safety Report 4819022-1 (Version None)
Quarter: 2005Q4

REPORT INFORMATION
  Report Type: 
  Country: None (occurrence: None)
  Receive Date: 20051101
  Receipt Date: 20051019
  Transmission Date: 20060501
  Serious: Yes (Other)
  Sender: FDA-Public Use
  Company Number: 2005146374

PATIENT
  Age: 85 Year
  Sex: Female

DRUGS (14)
  1. HALCION [Suspect]
     Indication: INSOMNIA
     Dosage: 0.125 MG, ORAL
     Route: 048
     Dates: start: 20051014
  2. ALDACTONE [Concomitant]
  3. LASIX [Concomitant]
  4. LEVOTHYROXINE SODIUM [Concomitant]
  5. NORVASC [Concomitant]
  6. PURSENNID (SENNA LEAF) [Concomitant]
  7. ASPIRIN [Concomitant]
  8. FAMOTIDINE [Concomitant]
  9. MAGNESIUM OXIDE (MAGNESIUM OXIDE) [Concomitant]
  10. FERROMA (FERROUS CITRATE) [Concomitant]
  11. PRIMPERAN TAB [Concomitant]
  12. EUGLUCON (GLIBENCLAMIDE) [Concomitant]
  13. MUCOSOLVAN (AMBROXOL HYDROCHLORIDE) [Concomitant]
  14. BASEN (VOGLIBOSE) [Concomitant]

REACTIONS (2)
  - COMA [None]
  - DEPRESSED LEVEL OF CONSCIOUSNESS [None]
